FAERS Safety Report 11529276 (Version 1)
Quarter: 2015Q3

REPORT INFORMATION
  Report Type: Spontaneous
  Country: US (occurrence: US)
  Receive Date: 20150921
  Receipt Date: 20150921
  Transmission Date: 20151125
  Serious: No
  Sender: FDA-Public Use
  Company Number: US-SHIRE-US201511842

PATIENT
  Sex: Male

DRUGS (1)
  1. FOSRENOL [Suspect]
     Active Substance: LANTHANUM CARBONATE
     Indication: PRODUCT USED FOR UNKNOWN INDICATION
     Dosage: 1000 MG, OTHER (WITH EACH MEAL)
     Route: 048

REACTIONS (2)
  - Mastication disorder [Not Recovered/Not Resolved]
  - Toothache [Not Recovered/Not Resolved]
